FAERS Safety Report 4656497-5 (Version None)
Quarter: 2005Q2

REPORT INFORMATION
  Report Type: 
  Country: None (occurrence: None)
  Receive Date: 20050505
  Receipt Date: 20050426
  Transmission Date: 20051028
  Serious: Yes (Hospitalization)
  Sender: FDA-Public Use
  Company Number: 2005066970

PATIENT
  Age: 93 Year
  Sex: Male

DRUGS (6)
  1. ALDACTONE [Suspect]
     Indication: OEDEMA PERIPHERAL
     Dosage: 50 MG (DAILY), ORAL
     Route: 048
     Dates: start: 20030301, end: 20030101
  2. BUFORMIN (BUFORMIN) [Suspect]
     Indication: DIABETES MELLITUS NON-INSULIN-DEPENDENT
     Dosage: 150 MG (DAILY), ORAL
     Route: 048
     Dates: start: 20030201, end: 20030101
  3. GLYBURIDE [Concomitant]
  4. FUROSEMIDE [Concomitant]
  5. CANDESARTAN (CANDESARTAN) [Concomitant]
  6. NIFEDIPINE [Concomitant]

REACTIONS (10)
  - ANOREXIA [None]
  - DEHYDRATION [None]
  - DEPRESSED LEVEL OF CONSCIOUSNESS [None]
  - DIARRHOEA [None]
  - DYSPNOEA [None]
  - GLYCOSYLATED HAEMOGLOBIN INCREASED [None]
  - LACTIC ACIDOSIS [None]
  - RENAL FAILURE [None]
  - URINARY TRACT INFECTION [None]
  - VOMITING [None]
